FAERS Safety Report 4273292-X (Version None)
Quarter: 2004Q1

REPORT INFORMATION
  Report Type: 
  Country: None (occurrence: None)
  Receive Date: 20040119
  Receipt Date: 20031231
  Transmission Date: 20041129
  Serious: Yes (Hospitalization, Other)
  Sender: FDA-Public Use
  Company Number: 200410000US

PATIENT
  Sex: Female
  Weight: 75.45 kg

DRUGS (9)
  1. TAXOTERE [Suspect]
     Indication: BREAST CANCER
     Route: 042
     Dates: start: 20031120, end: 20031211
  2. PLETAL [Concomitant]
     Indication: ARTERIAL STENOSIS
     Route: 048
     Dates: start: 20020101
  3. LIPITOR [Concomitant]
     Indication: HYPERCHOLESTEROLAEMIA
     Route: 048
     Dates: start: 20020205
  4. LOTREL [Concomitant]
     Indication: HYPERTENSION
     Dosage: DOSE: 5/20
     Route: 048
     Dates: start: 20010219
  5. ZYRTEC-D 12 HOUR [Concomitant]
     Indication: HYPERSENSITIVITY
     Route: 048
     Dates: start: 20010412
  6. PROPOXYPHENE NAPSYLATE W/ ACETAMINOPHEN [Concomitant]
     Indication: PAIN
     Dosage: DOSE: N-100/650 (1 TAB)
     Route: 048
     Dates: start: 20030610
  7. ZOLOFT [Concomitant]
     Indication: DEPRESSION
     Route: 048
     Dates: start: 20010525
  8. TOPROL-XL [Concomitant]
     Indication: HYPERTENSION
     Route: 048
     Dates: start: 20020129
  9. PHENERGAN HCL [Concomitant]
     Indication: NAUSEA
     Route: 048
     Dates: start: 20030805

REACTIONS (19)
  - ANAEMIA [None]
  - ASTHENIA [None]
  - BLOOD ALKALINE PHOSPHATASE INCREASED [None]
  - BLOOD BILIRUBIN INCREASED [None]
  - BLOOD CHLORIDE DECREASED [None]
  - BLOOD CREATININE INCREASED [None]
  - BLOOD GLUCOSE INCREASED [None]
  - BLOOD PRESSURE DECREASED [None]
  - BLOOD UREA INCREASED [None]
  - DEHYDRATION [None]
  - EATING DISORDER [None]
  - FATIGUE [None]
  - HYPERTROPHY BREAST [None]
  - HYPOKALAEMIA [None]
  - INFUSION SITE REACTION [None]
  - INJECTION SITE EXTRAVASATION [None]
  - PCO2 DECREASED [None]
  - PLATELET COUNT DECREASED [None]
  - WHITE BLOOD CELL COUNT INCREASED [None]
